FAERS Safety Report 10217283 (Version 1)
Quarter: 2014Q2

REPORT INFORMATION
  Report Type: Spontaneous
  Country: US (occurrence: US)
  Receive Date: 20140604
  Receipt Date: 20140604
  Transmission Date: 20141212
  Serious: No
  Sender: FDA-Public Use
  Company Number: US-PFIZER INC-2014150582

PATIENT
  Sex: Male

DRUGS (2)
  1. GABAPENTIN [Suspect]
     Indication: PAIN IN EXTREMITY
     Dosage: UNK
     Dates: start: 2013
  2. GABAPENTIN [Suspect]
     Dosage: UNK
     Dates: start: 20140530

REACTIONS (8)
  - Drug ineffective [Unknown]
  - Dizziness [Unknown]
  - Clumsiness [Unknown]
  - Speech disorder [Unknown]
  - Insomnia [Unknown]
  - Pyrexia [Unknown]
  - Arthralgia [Unknown]
  - Back pain [Unknown]
